FAERS Safety Report 7769136-1 (Version None)
Quarter: 2011Q3

REPORT INFORMATION
  Report Type: 
  Country: None (occurrence: None)
  Receive Date: 20110922
  Receipt Date: 20110307
  Transmission Date: 20111222
  Serious: Yes (Other)
  Sender: FDA-Public Use
  Company Number: US-ASTRAZENECA-2011SE01557

PATIENT
  Age: 14424 Day
  Sex: Female
  Weight: 71.7 kg

DRUGS (5)
  1. SEROQUEL XR [Suspect]
     Indication: MAJOR DEPRESSION
     Route: 048
     Dates: start: 20100101, end: 20100601
  2. SEROQUEL XR [Suspect]
     Route: 048
     Dates: start: 20100101, end: 20110103
  3. PAROXETINE HYDROCHLORIDE [Concomitant]
     Indication: DEPRESSION
     Route: 048
     Dates: start: 20090914
  4. SEROQUEL XR [Suspect]
     Indication: BIPOLAR DISORDER
     Route: 048
     Dates: start: 20100101, end: 20100601
  5. SEROQUEL XR [Suspect]
     Route: 048
     Dates: start: 20100101, end: 20110103

REACTIONS (1)
  - TARDIVE DYSKINESIA [None]
